FAERS Safety Report 18099453 (Version 1)
Quarter: 2020Q3

REPORT INFORMATION
  Report Type: Spontaneous
  Country: US (occurrence: US)
  Receive Date: 20200731
  Receipt Date: 20200731
  Transmission Date: 20201103
  Serious: Yes (Death, Other)
  Sender: FDA-Public Use
  Company Number: US-PURDUE-USA-2020-0160132

PATIENT
  Sex: Female

DRUGS (1)
  1. HYDROCODONE BITARTRATE/ACETAMINOPHEN [Suspect]
     Active Substance: ACETAMINOPHEN\HYDROCODONE BITARTRATE
     Indication: PRODUCT USED FOR UNKNOWN INDICATION
     Dosage: 120?150 TABLET, MONTHLY
     Route: 048
     Dates: start: 2002, end: 2017

REACTIONS (3)
  - Overdose [Fatal]
  - Drug dependence [Fatal]
  - Renal failure [Unknown]
